FAERS Safety Report 5428780-7 (Version None)
Quarter: 2007Q3

REPORT INFORMATION
  Report Type: 
  Country: None (occurrence: None)
  Receive Date: 20070827
  Receipt Date: 20070827
  Transmission Date: 20080115
  Serious: No
  Sender: FDA-Public Use
  Company Number: None

PATIENT
  Age: 38 Year
  Sex: Female
  Weight: 102.0593 kg

DRUGS (2)
  1. GAS-X MAXIMUN STRENGTH NOVARTIS CONSUMER HEALTH, INC. [Suspect]
     Indication: FLATULENCE
     Dosage: 166MG 3X/D PO
     Route: 048
     Dates: start: 20070812, end: 20070826
  2. GAS-X MAXIMUN STRENGTH NOVARTIS CONSUMER HEALTH, INC. [Suspect]
     Indication: GASTROOESOPHAGEAL REFLUX DISEASE
     Dosage: 166MG 3X/D PO
     Route: 048
     Dates: start: 20070812, end: 20070826

REACTIONS (1)
  - MEDICATION ERROR [None]
